FAERS Safety Report 5136717-3 (Version None)
Quarter: 2006Q4

REPORT INFORMATION
  Report Type: 
  Country: None (occurrence: None)
  Receive Date: 20061023
  Receipt Date: 20061013
  Transmission Date: 20070319
  Serious: Yes (Life-Threatening)
  Sender: FDA-Public Use
  Company Number: 028-20785-06100773

PATIENT
  Age: 56 Year
  Sex: Male

DRUGS (1)
  1. THALOMID [Suspect]
     Indication: LEUKAEMIA PLASMACYTIC
     Dosage: 200 MG, 4 IN 1 D, ORAL
     Route: 048
     Dates: start: 20050601, end: 20060823

REACTIONS (3)
  - DYSPNOEA [None]
  - OEDEMA [None]
  - PULMONARY HYPERTENSION [None]
